FAERS Safety Report 6842313-X (Version None)
Quarter: 2010Q3

REPORT INFORMATION
  Report Type: 
  Country: None (occurrence: None)
  Receive Date: 20100714
  Receipt Date: 20070724
  Transmission Date: 20110219
  Serious: No
  Sender: FDA-Public Use
  Company Number: US-PFIZER INC-2007062921

PATIENT
  Sex: Female
  Weight: 48.1 kg

DRUGS (2)
  1. CHANTIX [Suspect]
     Indication: SMOKING CESSATION THERAPY
     Dosage: INTERVAL: EVERY DAY
     Route: 048
     Dates: start: 20070720
  2. CENESTIN [Concomitant]

REACTIONS (2)
  - DIARRHOEA [None]
  - NAUSEA [None]
